FAERS Safety Report 10742251 (Version 1)
Quarter: 2015Q1

REPORT INFORMATION
  Report Type: Spontaneous
  Country: US (occurrence: None)
  Receive Date: 20150123
  Receipt Date: 20150123
  Transmission Date: 20150721
  Serious: Yes (Other)
  Sender: FDA-Public Use
  Company Number: None

PATIENT
  Age: 65 Year
  Sex: Female
  Weight: 77.57 kg

DRUGS (12)
  1. SERTRALINE HCL [Suspect]
     Active Substance: SERTRALINE HYDROCHLORIDE
  2. LORAZEPAM 0.5MG [Suspect]
     Active Substance: LORAZEPAM
  3. H.P. ACTHAR [Suspect]
     Active Substance: CORTICOTROPIN
     Indication: DERMATOMYOSITIS
     Dosage: 400 USP UNITS/ 5 ML  TWICE WK FOR 2 WEEKS INJECTION
     Dates: start: 20141218
  4. H.P. ACTHAR [Suspect]
     Active Substance: CORTICOTROPIN
     Indication: AUTOIMMUNE DISORDER
     Dosage: 400 USP UNITS/ 5 ML  TWICE WK FOR 2 WEEKS INJECTION
     Dates: start: 20141218
  5. OMEPRAZOLE. [Suspect]
     Active Substance: OMEPRAZOLE
  6. IBUPROFEN. [Suspect]
     Active Substance: IBUPROFEN
     Dosage: 800 MG EVERY 6 HOURS AS NEEDED
  7. GABAPENTIN. [Suspect]
     Active Substance: GABAPENTIN
  8. SIMVASTATIN 40 MG [Suspect]
     Active Substance: SIMVASTATIN
  9. LISINOPRIL. [Suspect]
     Active Substance: LISINOPRIL
  10. DULERA [Suspect]
     Active Substance: FORMOTEROL FUMARATE DIHYDRATE\MOMETASONE FUROATE
  11. TRAMADOL HCL [Suspect]
     Active Substance: TRAMADOL HYDROCHLORIDE
  12. TYLENOL [Concomitant]
     Active Substance: ACETAMINOPHEN

REACTIONS (1)
  - Incorrect dose administered [None]

NARRATIVE: CASE EVENT DATE: 20141218
